FAERS Safety Report 8346570-2 (Version None)
Quarter: 2012Q2

REPORT INFORMATION
  Report Type: 
  Country: None (occurrence: None)
  Receive Date: 20120509
  Receipt Date: 20120502
  Transmission Date: 20120825
  Serious: Yes (Other)
  Sender: FDA-Public Use
  Company Number: PHEH2012US009085

PATIENT
  Sex: Female

DRUGS (2)
  1. DROSPIRENONE AND ETHINYL ESTRADIOL [Concomitant]
  2. RECLAST [Suspect]
     Indication: OSTEOPOROSIS
     Route: 042
     Dates: start: 20120419

REACTIONS (10)
  - DIARRHOEA [None]
  - GAIT DISTURBANCE [None]
  - THIRST [None]
  - BONE PAIN [None]
  - COORDINATION ABNORMAL [None]
  - PAIN IN JAW [None]
  - PYREXIA [None]
  - DECREASED APPETITE [None]
  - INFLUENZA LIKE ILLNESS [None]
  - ASTHENIA [None]
